FAERS Safety Report 9269894 (Version 3)
Quarter: 2013Q4

REPORT INFORMATION
  Report Type: Spontaneous
  Country: US (occurrence: US)
  Receive Date: 20130503
  Receipt Date: 20131119
  Transmission Date: 20140711
  Serious: Yes (Death, Hospitalization)
  Sender: FDA-Public Use
  Company Number: US-B.I. PHARMACEUTICALS,INC./RIDGEFIELD-2013-BI-12218BP

PATIENT
  Age: 73 Year
  Sex: Male
  Weight: 90.72 kg

DRUGS (6)
  1. PRADAXA [Suspect]
     Indication: ANTICOAGULANT THERAPY
     Dosage: 150 MG
     Dates: start: 20120215, end: 20120224
  2. ROBITUSSIN AC [Concomitant]
     Indication: COUGH
     Route: 048
  3. DAILYVITE [Concomitant]
     Route: 048
  4. COREG [Concomitant]
     Dosage: 6.25 MG
     Route: 048
     Dates: start: 201105, end: 201202
  5. ZOCOR [Concomitant]
     Dosage: 20 MG
     Route: 048
     Dates: start: 200712, end: 201202
  6. RENVELA [Concomitant]
     Dosage: 2400 MG
     Route: 048

REACTIONS (3)
  - Shock [Fatal]
  - Gastrointestinal haemorrhage [Unknown]
  - Haemorrhage [Unknown]
